FAERS Safety Report 12750314 (Version 1)
Quarter: 2016Q3

REPORT INFORMATION
  Report Type: Spontaneous
  Country: US (occurrence: US)
  Receive Date: 20160916
  Receipt Date: 20160916
  Transmission Date: 20161109
  Serious: No
  Sender: FDA-Public Use
  Company Number: US-PFIZER INC-2016431126

PATIENT
  Age: 79 Year
  Sex: Female
  Weight: 108 kg

DRUGS (9)
  1. OMEPRAZOLE. [Concomitant]
     Active Substance: OMEPRAZOLE
     Indication: DYSPEPSIA
     Dosage: 20 MG, ALTERNATE DAY
  2. WARFARIN [Concomitant]
     Active Substance: WARFARIN
     Indication: THROMBOSIS
     Dosage: 2.5 MG, 1X/DAY
     Route: 048
     Dates: start: 2012
  3. HYDROCODONE/ACETAMINOPHEN [Concomitant]
     Active Substance: ACETAMINOPHEN\HYDROCODONE
     Indication: PAIN IN EXTREMITY
     Dosage: 5-325 MG, 1X/DAY
  4. VITAMIN B12 [Concomitant]
     Active Substance: CYANOCOBALAMIN
     Indication: HYPOVITAMINOSIS
     Dosage: UNK UNK, 1X/DAY
     Dates: start: 2015
  5. PROBIOTIC [Concomitant]
     Active Substance: PROBIOTICS NOS
     Indication: BOWEL MOVEMENT IRREGULARITY
     Dosage: 25 MG, DAILY
  6. IBRANCE [Suspect]
     Active Substance: PALBOCICLIB
     Indication: BREAST CANCER METASTATIC
     Dosage: 125 MG, 1X/DAY
     Route: 048
     Dates: start: 20160704
  7. FISH OIL [Concomitant]
     Active Substance: FISH OIL
     Indication: SUPPLEMENTATION THERAPY
     Dosage: 1 DF, DAILY
  8. GABAPENTIN. [Concomitant]
     Active Substance: GABAPENTIN
     Indication: NEUROPATHY PERIPHERAL
     Dosage: 100 MG, 3X/DAY
  9. CRESTOR [Concomitant]
     Active Substance: ROSUVASTATIN CALCIUM
     Indication: BLOOD CHOLESTEROL INCREASED
     Dosage: 20 MG, 1X/DAY

REACTIONS (1)
  - White blood cell count decreased [Not Recovered/Not Resolved]

NARRATIVE: CASE EVENT DATE: 20160820
